FAERS Safety Report 4870417-X (Version None)
Quarter: 2006Q1

REPORT INFORMATION
  Report Type: 
  Country: None (occurrence: None)
  Receive Date: 20060103
  Receipt Date: 20041203
  Transmission Date: 20060701
  Serious: No
  Sender: FDA-Public Use
  Company Number: US-BRISTOL-MYERS SQUIBB COMPANY-12783924

PATIENT

DRUGS (1)
  1. DESYREL [Suspect]
     Route: 048

REACTIONS (1)
  - ALOPECIA [None]
